FAERS Safety Report 6919310-9 (Version None)
Quarter: 2010Q3

REPORT INFORMATION
  Report Type: 
  Country: None (occurrence: None)
  Receive Date: 20100811
  Receipt Date: 20100805
  Transmission Date: 20110219
  Serious: Yes (Other)
  Sender: FDA-Public Use
  Company Number: A0871430A

PATIENT
  Sex: Female
  Weight: 75 kg

DRUGS (2)
  1. SERETIDE [Suspect]
     Indication: ASTHMA
     Dosage: 1PUFF TWICE PER DAY
     Route: 055
     Dates: start: 20100101
  2. BUDECORT [Concomitant]
     Dosage: 1PUFF TWICE PER DAY
     Route: 045
     Dates: start: 20100101

REACTIONS (3)
  - ASTHMATIC CRISIS [None]
  - DYSPNOEA [None]
  - PRODUCT QUALITY ISSUE [None]
